FAERS Safety Report 15941358 (Version 1)
Quarter: 2019Q1

REPORT INFORMATION
  Report Type: Spontaneous
  Country: US (occurrence: US)
  Receive Date: 20190208
  Receipt Date: 20190208
  Transmission Date: 20190417
  Serious: Yes (Life-Threatening, Hospitalization, Other)
  Sender: FDA-Public Use
  Company Number: US-ASTRAZENECA-2019SE22426

PATIENT
  Age: 53 Year
  Sex: Female
  Weight: 52.2 kg

DRUGS (9)
  1. NEXIUM [Suspect]
     Active Substance: ESOMEPRAZOLE MAGNESIUM
     Indication: ULCER
     Route: 048
  2. ISOSORBIDE. [Suspect]
     Active Substance: ISOSORBIDE
     Indication: ILL-DEFINED DISORDER
     Route: 048
  3. PRILOSEC [Suspect]
     Active Substance: OMEPRAZOLE MAGNESIUM
     Indication: GASTRITIS
     Route: 048
  4. PRILOSEC [Suspect]
     Active Substance: OMEPRAZOLE MAGNESIUM
     Indication: ULCER
     Route: 048
  5. PREDNISONE. [Concomitant]
     Active Substance: PREDNISONE
  6. NEXIUM [Suspect]
     Active Substance: ESOMEPRAZOLE MAGNESIUM
     Indication: GASTRITIS
     Route: 048
  7. NEXIUM [Suspect]
     Active Substance: ESOMEPRAZOLE MAGNESIUM
     Indication: DYSPEPSIA
     Route: 048
  8. VANCOMYCIN [Concomitant]
     Active Substance: VANCOMYCIN
     Indication: OSTEOMYELITIS
     Dosage: 12 PILLS IN THE MORNING
  9. PRILOSEC [Suspect]
     Active Substance: OMEPRAZOLE MAGNESIUM
     Indication: DYSPEPSIA
     Route: 048

REACTIONS (37)
  - Pancreatitis [Unknown]
  - Deep vein thrombosis [Unknown]
  - Osteoarthritis [Not Recovered/Not Resolved]
  - Hernia [Unknown]
  - Dyspepsia [Unknown]
  - Oesophageal spasm [Unknown]
  - Joint swelling [Not Recovered/Not Resolved]
  - Hot flush [Unknown]
  - Urticaria [Unknown]
  - Intentional product misuse [Unknown]
  - Infection [Recovered/Resolved]
  - Cardiac murmur [Unknown]
  - Body height decreased [Not Recovered/Not Resolved]
  - Blood disorder [Unknown]
  - Infection [Unknown]
  - Intervertebral disc protrusion [Not Recovered/Not Resolved]
  - Spinal column stenosis [Not Recovered/Not Resolved]
  - Thrombosis [Unknown]
  - Hypersensitivity [Unknown]
  - Clostridium difficile infection [Unknown]
  - Myocardial infarction [Unknown]
  - Chest pain [Unknown]
  - Drug ineffective [Unknown]
  - Diverticulitis [Unknown]
  - Osteomyelitis [Recovering/Resolving]
  - Pulmonary embolism [Unknown]
  - Autoimmune disorder [Not Recovered/Not Resolved]
  - Weight decreased [Not Recovered/Not Resolved]
  - Arrhythmia [Unknown]
  - Fall [Unknown]
  - Vomiting [Unknown]
  - Diarrhoea [Unknown]
  - Lip swelling [Unknown]
  - Off label use [Unknown]
  - Hiatus hernia [Unknown]
  - Gastrointestinal disorder [Unknown]
  - Pelvic mass [Unknown]

NARRATIVE: CASE EVENT DATE: 2004
